FAERS Safety Report 9769632 (Version 1)
Quarter: 2013Q4

REPORT INFORMATION
  Report Type: Spontaneous
  Country: PL (occurrence: PL)
  Receive Date: 20131218
  Receipt Date: 20131218
  Transmission Date: 20140711
  Serious: Yes (Other)
  Sender: FDA-Public Use
  Company Number: PL-VERTEX PHARMACEUTICALS INC-2013-011853

PATIENT
  Sex: 0

DRUGS (3)
  1. INCIVO [Suspect]
     Indication: HEPATITIS C
     Route: 048
  2. PEG INTERFERON [Suspect]
     Indication: HEPATITIS C
     Dosage: DOSAGE FORM: UNSPECIFIED
     Route: 065
  3. RIBAVIRIN [Suspect]
     Indication: HEPATITIS C
     Dosage: DOSAGE FORM: UNSPECIFIED
     Route: 065

REACTIONS (18)
  - Neutropenia [Unknown]
  - Thrombocytopenia [Unknown]
  - Anaemia [Unknown]
  - Rash [Unknown]
  - Influenza like illness [Unknown]
  - Decreased appetite [Unknown]
  - Weight decreased [Unknown]
  - Alopecia [Unknown]
  - Headache [Unknown]
  - Arthralgia [Unknown]
  - Sleep disorder [Unknown]
  - Dry mouth [Unknown]
  - Cough [Unknown]
  - Asthenia [Unknown]
  - Anal pruritus [Unknown]
  - Anorectal discomfort [Unknown]
  - Pruritus [Unknown]
  - Drug ineffective [Unknown]
